FAERS Safety Report 10516213 (Version 1)
Quarter: 2014Q4

REPORT INFORMATION
  Report Type: Report from Study
  Country: US (occurrence: US)
  Receive Date: 20141014
  Receipt Date: 20141014
  Transmission Date: 20150528
  Serious: No
  Sender: FDA-Public Use
  Company Number: US-ALEXION-A200800753

PATIENT
  Sex: Male

DRUGS (1)
  1. SOLIRIS [Suspect]
     Active Substance: ECULIZUMAB
     Indication: PAROXYSMAL NOCTURNAL HAEMOGLOBINURIA
     Dosage: 1200 MG, Q2W
     Route: 042

REACTIONS (9)
  - Haemoglobinuria [Unknown]
  - Blood lactate dehydrogenase increased [Unknown]
  - Fatigue [Unknown]
  - Haemolysis [Unknown]
  - Blood iron increased [Unknown]
  - Iron overload [Unknown]
  - Quality of life decreased [Unknown]
  - Drug hypersensitivity [Unknown]
  - Nasopharyngitis [Unknown]
